FAERS Safety Report 7575200-2 (Version None)
Quarter: 2011Q2

REPORT INFORMATION
  Report Type: 
  Country: None (occurrence: None)
  Receive Date: 20110627
  Receipt Date: 20110616
  Transmission Date: 20111010
  Serious: Yes (Life-Threatening)
  Sender: FDA-Public Use
  Company Number: JP-UCBSA-033846

PATIENT
  Sex: Female
  Weight: 50.5 kg

DRUGS (7)
  1. KEPPRA [Suspect]
     Indication: EPILEPSY
     Route: 048
     Dates: start: 20110420, end: 20110510
  2. HYDANTOL [Concomitant]
     Route: 048
  3. ONON [Concomitant]
     Route: 048
  4. PHENOBARBITAL TAB [Concomitant]
     Route: 048
  5. MINOCYCLINE HCL [Concomitant]
  6. PROGRAF [Concomitant]
     Route: 048
  7. PHENYTOIN [Concomitant]
     Route: 048

REACTIONS (1)
  - STATUS EPILEPTICUS [None]
